FAERS Safety Report 8744044 (Version 2)
Quarter: 2012Q4

REPORT INFORMATION
  Report Type: 
  Country: US (occurrence: US)
  Receive Date: 20120824
  Receipt Date: 20121016
  Transmission Date: 20130627
  Serious: No
  Sender: FDA-Public Use
  Company Number: US-PFIZER INC-2012205859

PATIENT
  Age: 55 Year
  Sex: Female
  Weight: 81.6 kg

DRUGS (3)
  1. LYRICA [Suspect]
     Indication: NEURALGIA
     Dosage: 150 mg, 2x/day
     Route: 048
  2. NEURONTIN [Suspect]
     Indication: NEURALGIA
     Dosage: UNK
     Route: 048
  3. AMBIEN [Concomitant]
     Dosage: UNK

REACTIONS (6)
  - Drug ineffective [Unknown]
  - White blood cell count increased [Unknown]
  - Platelet count increased [Unknown]
  - Therapeutic response unexpected [Not Recovered/Not Resolved]
  - Balance disorder [Not Recovered/Not Resolved]
  - Dizziness [Not Recovered/Not Resolved]
